FAERS Safety Report 9638297 (Version 1)
Quarter: 2013Q4

REPORT INFORMATION
  Report Type: Spontaneous
  Country: US (occurrence: None)
  Receive Date: 20131021
  Receipt Date: 20131021
  Transmission Date: 20140711
  Serious: Yes (Hospitalization)
  Sender: FDA-Public Use
  Company Number: None

PATIENT
  Age: 56 Year
  Sex: Female

DRUGS (1)
  1. STIVARGA [Suspect]
     Indication: NEOPLASM MALIGNANT
     Route: 048
     Dates: start: 20130925

REACTIONS (5)
  - Blister [None]
  - Rash [None]
  - Dry mouth [None]
  - Secretion discharge [None]
  - Decreased appetite [None]
